FAERS Safety Report 6713118-5 (Version None)
Quarter: 2010Q2

REPORT INFORMATION
  Report Type: 
  Country: None (occurrence: None)
  Receive Date: 20100506
  Receipt Date: 20090406
  Transmission Date: 20101027
  Serious: No
  Sender: FDA-Public Use
  Company Number: A0777377A

PATIENT
  Age: 5 Year
  Sex: Female

DRUGS (3)
  1. AMOXIL [Suspect]
     Route: 048
     Dates: start: 20090322, end: 20090329
  2. VERAMYST [Suspect]
     Indication: NASAL CONGESTION
     Dosage: 2SPR PER DAY
     Route: 045
     Dates: start: 20090322, end: 20090329
  3. BENADRYL [Concomitant]

REACTIONS (1)
  - RASH [None]
